FAERS Safety Report 11993405 (Version 1)
Quarter: 2016Q1

REPORT INFORMATION
  Report Type: Spontaneous
  Country: TR (occurrence: TR)
  Receive Date: 20160203
  Receipt Date: 20160203
  Transmission Date: 20160526
  Serious: Yes (Hospitalization, Other)
  Sender: FDA-Public Use
  Company Number: TR-ACTAVIS-2016-02211

PATIENT
  Age: 45 Year
  Sex: Female

DRUGS (3)
  1. TRAMADOL (UNKNOWN) [Suspect]
     Active Substance: TRAMADOL
     Indication: PAIN
     Dosage: 100 MG, UNK
     Route: 042
  2. CEFAZOLIN [Concomitant]
     Active Substance: CEFAZOLIN
     Indication: PREMEDICATION
     Dosage: 2 G, UNKNOWN
     Route: 065
  3. BUPIVACAINE [Concomitant]
     Active Substance: BUPIVACAINE
     Indication: SPINAL ANAESTHESIA
     Dosage: UNK
     Route: 065

REACTIONS (1)
  - Kounis syndrome [Recovering/Resolving]
